FAERS Safety Report 5868439-5 (Version None)
Quarter: 2008Q3

REPORT INFORMATION
  Report Type: 
  Country: None (occurrence: None)
  Receive Date: 20080903
  Receipt Date: 20080822
  Transmission Date: 20090109
  Serious: Yes (Other)
  Sender: FDA-Public Use
  Company Number: HQWYE582012JAN05

PATIENT
  Sex: Female

DRUGS (4)
  1. PREMARIN [Suspect]
  2. ESTRADIOL [Suspect]
  3. PROVERA [Suspect]
  4. MEDROXYPROGESTERONE ACETATE [Suspect]

REACTIONS (1)
  - BREAST CANCER RECURRENT [None]
